FAERS Safety Report 7559337-X (Version None)
Quarter: 2011Q2

REPORT INFORMATION
  Report Type: 
  Country: None (occurrence: None)
  Receive Date: 20110621
  Receipt Date: 20110616
  Transmission Date: 20111010
  Serious: Yes (Other)
  Sender: FDA-Public Use
  Company Number: US-PFIZER INC-2011124235

PATIENT
  Sex: Female
  Weight: 46 kg

DRUGS (6)
  1. ALBUTEROL SULFATE AUTOHALER [Concomitant]
     Dosage: UNK
  2. NORVASC [Concomitant]
     Indication: HYPERTENSION
     Dosage: UNK
  3. TEGRETOL [Concomitant]
     Indication: CONVULSION
     Dosage: UNK
  4. XANAX [Concomitant]
     Dosage: UNK
  5. SEROQUEL [Concomitant]
     Dosage: UNK
  6. CHANTIX [Suspect]
     Indication: SMOKING CESSATION THERAPY
     Dosage: 0.5 MG, 1X/DAY
     Route: 048
     Dates: start: 20101001, end: 20101001

REACTIONS (9)
  - GASTROOESOPHAGEAL REFLUX DISEASE [None]
  - DECREASED INTEREST [None]
  - CHRONIC OBSTRUCTIVE PULMONARY DISEASE [None]
  - CONDITION AGGRAVATED [None]
  - VISUAL IMPAIRMENT [None]
  - DRUG WITHDRAWAL SYNDROME [None]
  - GASTRIC DISORDER [None]
  - IRRITABILITY [None]
  - AGGRESSION [None]
